FAERS Safety Report 24199806 (Version 1)
Quarter: 2024Q3

REPORT INFORMATION
  Report Type: Spontaneous
  Country: US (occurrence: US)
  Receive Date: 20240812
  Receipt Date: 20240812
  Transmission Date: 20241016
  Serious: Yes (Other)
  Sender: AUROBINDO
  Company Number: US-MLMSERVICE-20240723-PI140139-00082-1

PATIENT
  Age: 69 Year
  Sex: Female

DRUGS (1)
  1. CARBOPLATIN [Suspect]
     Active Substance: CARBOPLATIN
     Indication: Ovarian cancer
     Dosage: UNK UNK, 3 CYCLICAL
     Route: 065
     Dates: start: 20180612, end: 20180911

REACTIONS (1)
  - Myelosuppression [Unknown]

NARRATIVE: CASE EVENT DATE: 20180101
